FAERS Safety Report 8567598-3 (Version None)
Quarter: 2012Q3

REPORT INFORMATION
  Report Type: 
  Country: None (occurrence: None)
  Receive Date: 20120803
  Receipt Date: 20110916
  Transmission Date: 20120928
  Serious: No
  Sender: FDA-Public Use
  Company Number: US-ABBOTT-11P-163-0855521-00

PATIENT
  Weight: 115.77 kg

DRUGS (8)
  1. GLUCOVANCE [Concomitant]
     Indication: DIABETES MELLITUS
  2. AVAPRO [Concomitant]
     Indication: PRODUCT USED FOR UNKNOWN INDICATION
  3. JANUVIA [Concomitant]
     Indication: DIABETES MELLITUS
  4. LESCOL [Concomitant]
     Indication: BLOOD CHOLESTEROL
  5. NIASPAN [Suspect]
  6. NIASPAN [Suspect]
     Indication: BLOOD CHOLESTEROL
     Dates: start: 20070101
  7. ANDROGEL [Concomitant]
     Indication: BLOOD TESTOSTERONE DECREASED
  8. GLUCOPHAGE [Concomitant]
     Indication: DIABETES MELLITUS

REACTIONS (3)
  - FLUSHING [None]
  - GLYCOSYLATED HAEMOGLOBIN INCREASED [None]
  - PARAESTHESIA [None]
